FAERS Safety Report 5168226-X (Version None)
Quarter: 2006Q4

REPORT INFORMATION
  Report Type: 
  Country: None (occurrence: None)
  Receive Date: 20061208
  Receipt Date: 19990408
  Transmission Date: 20070319
  Serious: Yes (Hospitalization, Other)
  Sender: FDA-Public Use
  Company Number: FR-GLAXOSMITHKLINE-B0065726A

PATIENT
  Age: 1 Day
  Sex: Male
  Weight: 2.9 kg

DRUGS (6)
  1. LAMIVUDINE [Suspect]
     Indication: ANTIVIRAL PROPHYLAXIS
     Route: 048
     Dates: start: 19990125, end: 19990207
  2. ZIDOVUDINE [Suspect]
     Indication: ANTIVIRAL PROPHYLAXIS
     Route: 048
     Dates: start: 19990125, end: 19990207
  3. COMBIVIR [Suspect]
     Indication: HUMAN IMMUNODEFICIENCY VIRUS TRANSMISSION
     Route: 048
  4. ZIDOVUDINE [Suspect]
     Indication: HUMAN IMMUNODEFICIENCY VIRUS TRANSMISSION
     Route: 048
  5. BUPRENORPHINE HCL [Concomitant]
     Route: 048
  6. GENHEVAC B [Concomitant]

REACTIONS (8)
  - ANAEMIA [None]
  - BLOOD LACTIC ACID INCREASED [None]
  - DEHYDRATION [None]
  - FEEDING DISORDER NEONATAL [None]
  - FOOD INTOLERANCE [None]
  - TRANSAMINASES INCREASED [None]
  - VOMITING [None]
  - WEIGHT DECREASED [None]
